FAERS Safety Report 5045862-2 (Version None)
Quarter: 2006Q3

REPORT INFORMATION
  Report Type: 
  Country: None (occurrence: None)
  Receive Date: 20060710
  Receipt Date: 20060629
  Transmission Date: 20061208
  Serious: Yes (Hospitalization)
  Sender: FDA-Public Use
  Company Number: 2006PK01457

PATIENT
  Age: 55 Year
  Sex: Female

DRUGS (4)
  1. SEROQUEL [Suspect]
     Indication: BIPOLAR DISORDER
     Route: 048
     Dates: start: 20060405
  2. SOLIAN [Concomitant]
     Indication: BIPOLAR DISORDER
     Route: 048
     Dates: start: 20060121
  3. ESCITALOPRAM OXALATE [Concomitant]
     Indication: BIPOLAR DISORDER
     Route: 048
     Dates: start: 20060201
  4. EDRONAX [Concomitant]
     Indication: BIPOLAR DISORDER
     Route: 048
     Dates: start: 20060302

REACTIONS (1)
  - CHOLESTASIS [None]
